FAERS Safety Report 20767277 (Version 1)
Quarter: 2022Q2

REPORT INFORMATION
  Report Type: Spontaneous
  Country: US (occurrence: US)
  Receive Date: 20220429
  Receipt Date: 20220429
  Transmission Date: 20220720
  Serious: No
  Sender: FDA-Public Use
  Company Number: US-NOVARTISTESTPH-NVSC2022US098823

PATIENT

DRUGS (2)
  1. TABRECTA [Suspect]
     Active Substance: CAPMATINIB
     Indication: Non-small cell lung cancer
     Route: 065
  2. TABRECTA [Suspect]
     Active Substance: CAPMATINIB
     Indication: EGFR gene mutation

REACTIONS (1)
  - Pneumonitis [Unknown]
